FAERS Safety Report 4289125-1 (Version None)
Quarter: 2004Q1

REPORT INFORMATION
  Report Type: 
  Country: None (occurrence: None)
  Receive Date: 20040205
  Receipt Date: 20040109
  Transmission Date: 20041129
  Serious: Yes (Hospitalization)
  Sender: FDA-Public Use
  Company Number: A0416353A

PATIENT
  Age: 61 Year
  Sex: Female
  Weight: 70.7611 kg

DRUGS (25)
  1. AVANDIA [Suspect]
     Indication: DIABETES MELLITUS NON-INSULIN-DEPENDENT
     Dosage: ORAL
     Route: 048
     Dates: start: 19990825, end: 20010101
  2. CARVEDILOL [Concomitant]
  3. AMIODARONE HCL [Concomitant]
  4. METFORMIN HYDROCHLORIDE [Concomitant]
  5. THYROXINE SODIUM [Concomitant]
  6. LEVOFLOXACIN [Concomitant]
  7. CONJUGATED ESTROGENS [Concomitant]
  8. ASPIRIN [Concomitant]
  9. BETA-BLOCKER [Concomitant]
  10. ENALAPRIL MALEATE [Concomitant]
  11. FRUSEMIDE [Concomitant]
  12. PARACETAMOL [Concomitant]
  13. IBUPROFEN [Concomitant]
  14. ATORVASTATIN CALCIUM [Concomitant]
  15. SIMVASTATIN [Concomitant]
  16. NADOLOL [Concomitant]
  17. POTASSIUM SALT [Concomitant]
  18. GLIPIZIDE [Concomitant]
  19. WARFARIN SODIUM [Concomitant]
  20. INT. /LONG-ACTING INSULIN [Concomitant]
  21. NICOTINIC ACID [Concomitant]
  22. ISOSORBIDE MONONITRATE [Concomitant]
  23. PRAVASTATIN SODIUM [Concomitant]
  24. SERTRALINE HCL [Concomitant]
  25. NATEGLINIDE [Concomitant]

REACTIONS (13)
  - ACUTE MYOCARDIAL INFARCTION [None]
  - ANGINA PECTORIS [None]
  - CARDIAC FAILURE CONGESTIVE [None]
  - CHEST PAIN [None]
  - CORONARY ARTERY DISEASE [None]
  - CORONARY ARTERY OCCLUSION [None]
  - INJURY [None]
  - LOW CARDIAC OUTPUT SYNDROME [None]
  - MITRAL VALVE INCOMPETENCE [None]
  - NORMOCHROMIC NORMOCYTIC ANAEMIA [None]
  - PULMONARY ARTERIAL WEDGE PRESSURE INCREASED [None]
  - PULMONARY HYPERTENSION [None]
  - VENTRICULAR HYPOKINESIA [None]
